FAERS Safety Report 16135995 (Version 1)
Quarter: 2019Q1

REPORT INFORMATION
  Report Type: Spontaneous
  Country: US (occurrence: US)
  Receive Date: 20190329
  Receipt Date: 20190329
  Transmission Date: 20190418
  Serious: Yes (Other)
  Sender: FDA-Public Use
  Company Number: US-009507513-1903USA011014

PATIENT
  Sex: Female

DRUGS (1)
  1. NUVARING [Suspect]
     Active Substance: ETHINYL ESTRADIOL\ETONOGESTREL
     Indication: PRODUCT USED FOR UNKNOWN INDICATION
     Dosage: 0.12-0.015 MG
     Route: 067
     Dates: start: 20170308

REACTIONS (16)
  - Arthropod bite [Unknown]
  - Rheumatoid arthritis [Unknown]
  - Malaise [Unknown]
  - Arthralgia [Unknown]
  - Temperature intolerance [Unknown]
  - Systemic lupus erythematosus [Unknown]
  - Pain in extremity [Unknown]
  - Fatigue [Unknown]
  - Aphthous ulcer [Unknown]
  - Pulmonary embolism [Recovering/Resolving]
  - Paranasal sinus hyposecretion [Unknown]
  - Lyme disease [Unknown]
  - Oropharyngeal pain [Unknown]
  - Feeling cold [Unknown]
  - Nephrolithiasis [Unknown]
  - Ear discomfort [Unknown]

NARRATIVE: CASE EVENT DATE: 2017
